FAERS Safety Report 7679773-0 (Version None)
Quarter: 2011Q3

REPORT INFORMATION
  Report Type: 
  Country: None (occurrence: None)
  Receive Date: 20110812
  Receipt Date: 20110801
  Transmission Date: 20111222
  Serious: Yes (Hospitalization)
  Sender: FDA-Public Use
  Company Number: US-JNJFOC-20110307623

PATIENT
  Sex: Male

DRUGS (3)
  1. REMICADE [Suspect]
     Route: 042
     Dates: start: 20090617
  2. REMICADE [Suspect]
     Indication: CROHN'S DISEASE
     Dosage: TOTAL 5 DOSES
     Route: 042
     Dates: start: 20091110
  3. REMICADE [Suspect]
     Dosage: 8 DOSES
     Route: 042
     Dates: start: 20100226

REACTIONS (4)
  - ABDOMINAL PAIN [None]
  - STAPHYLOCOCCAL INFECTION [None]
  - NAUSEA [None]
  - LOCALISED INFECTION [None]
